FAERS Safety Report 5602607-2 (Version None)
Quarter: 2008Q1

REPORT INFORMATION
  Report Type: 
  Country: None (occurrence: None)
  Receive Date: 20080125
  Receipt Date: 20080117
  Transmission Date: 20080703
  Serious: Yes (Disabling)
  Sender: FDA-Public Use
  Company Number: BR-AVENTIS-200711387EU

PATIENT
  Age: 64 Year
  Sex: Male
  Weight: 77 kg

DRUGS (10)
  1. TRENTAL [Suspect]
     Route: 048
     Dates: start: 20070308, end: 20070326
  2. TRENTAL [Suspect]
     Route: 048
     Dates: start: 20070101, end: 20070101
  3. TICLID [Concomitant]
     Route: 048
     Dates: start: 20070308
  4. LEXOTAN [Concomitant]
     Dosage: DOSE: 1 TABLET
     Route: 048
  5. LEXOTAN [Concomitant]
     Dosage: DOSE: 1.5 TABLET
     Route: 048
     Dates: start: 20020101
  6. ARADOIS [Concomitant]
     Indication: HYPERTENSION
     Route: 048
     Dates: start: 20030101
  7. EUTHYROX [Concomitant]
     Indication: HYPOTHYROIDISM
     Route: 048
     Dates: start: 20000101
  8. ASPIRINA                           /00002701/ [Concomitant]
     Indication: PAIN
     Route: 048
     Dates: start: 20040101
  9. OMEPRAZOLE [Concomitant]
     Dosage: DOSE: 1 TABLET
     Route: 048
     Dates: start: 20040101
  10. GLUCOSAMINE + CHONDROITIN [Concomitant]
     Route: 048
     Dates: start: 20010101

REACTIONS (9)
  - ASTHENIA [None]
  - CONDITION AGGRAVATED [None]
  - DIZZINESS [None]
  - MALAISE [None]
  - MUSCULAR WEAKNESS [None]
  - PALPITATIONS [None]
  - SENSORY DISTURBANCE [None]
  - SOMNOLENCE [None]
  - TREMOR [None]
